FAERS Safety Report 5073642-0 (Version None)
Quarter: 2006Q3

REPORT INFORMATION
  Report Type: 
  Country: None (occurrence: None)
  Receive Date: 20060808
  Receipt Date: 20050311
  Transmission Date: 20061208
  Serious: No
  Sender: FDA-Public Use
  Company Number: US-AMGEN-US120414

PATIENT
  Sex: Male
  Weight: 69.5 kg

DRUGS (11)
  1. EPOGEN [Suspect]
     Indication: DIALYSIS
     Route: 042
     Dates: start: 20040510
  2. CYCLOSPORINE [Concomitant]
     Route: 048
     Dates: start: 20040615
  3. LIPITOR [Concomitant]
     Route: 048
     Dates: start: 20040615
  4. WELLBUTRIN [Concomitant]
     Route: 048
     Dates: start: 20040616
  5. ECOTRIN [Concomitant]
     Route: 048
     Dates: start: 20040616
  6. ZOLOFT [Concomitant]
     Route: 048
     Dates: start: 20040622
  7. LEVOXYL [Concomitant]
     Route: 048
  8. CELLCEPT [Concomitant]
     Route: 048
     Dates: start: 20050312
  9. CARDIZEM [Concomitant]
     Route: 048
     Dates: start: 20050203
  10. FERROUS SULFATE TAB [Concomitant]
     Route: 048
     Dates: start: 20040615
  11. FERRLECIT FOR INJECTION [Concomitant]
     Route: 042
     Dates: start: 20040525, end: 20040601

REACTIONS (1)
  - THERAPEUTIC RESPONSE DECREASED [None]
